FAERS Safety Report 15396329 (Version 8)
Quarter: 2020Q1

REPORT INFORMATION
  Report Type: Spontaneous
  Country: CA (occurrence: CA)
  Receive Date: 20180918
  Receipt Date: 20200320
  Transmission Date: 20200409
  Serious: Yes (Other)
  Sender: FDA-Public Use
  Company Number: CA-JNJFOC-20180911207

PATIENT
  Age: 54 Year
  Sex: Female

DRUGS (29)
  1. ARAVA [Suspect]
     Active Substance: LEFLUNOMIDE
     Indication: RHEUMATOID ARTHRITIS
     Route: 048
  2. SULFASALAZINE. [Suspect]
     Active Substance: SULFASALAZINE
     Indication: RHEUMATOID ARTHRITIS
     Route: 048
     Dates: start: 200707, end: 200712
  3. ENBREL [Suspect]
     Active Substance: ETANERCEPT
     Route: 065
  4. XELJANZ [Concomitant]
     Active Substance: TOFACITINIB CITRATE
     Route: 065
  5. PARACETAMOL [Suspect]
     Active Substance: ACETAMINOPHEN
     Indication: RHEUMATOID ARTHRITIS
     Route: 065
  6. PLAQUENIL [Suspect]
     Active Substance: HYDROXYCHLOROQUINE SULFATE
     Indication: RHEUMATOID ARTHRITIS
     Route: 048
  7. SYNTHROID [Concomitant]
     Active Substance: LEVOTHYROXINE SODIUM
     Route: 065
  8. REMICADE [Suspect]
     Active Substance: INFLIXIMAB
     Indication: RHEUMATOID ARTHRITIS
     Route: 042
  9. ORENCIA [Suspect]
     Active Substance: ABATACEPT
     Indication: RHEUMATOID ARTHRITIS
     Route: 065
  10. ACETAMINOPHEN AND DIPHENHYDRAMINE HYDROCHLORIDE [Suspect]
     Active Substance: ACETAMINOPHEN\DIPHENHYDRAMINE HYDROCHLORIDE
     Indication: PRODUCT USED FOR UNKNOWN INDICATION
     Route: 065
  11. RITUXAN [Suspect]
     Active Substance: RITUXIMAB
     Indication: RHEUMATOID ARTHRITIS
     Route: 042
  12. SULFASALAZINE. [Suspect]
     Active Substance: SULFASALAZINE
     Route: 048
  13. ENBREL [Suspect]
     Active Substance: ETANERCEPT
     Indication: RHEUMATOID ARTHRITIS
     Route: 065
     Dates: start: 200310, end: 2006
  14. LEFLUNOMIDE. [Suspect]
     Active Substance: LEFLUNOMIDE
     Indication: RHEUMATOID ARTHRITIS
     Route: 048
     Dates: start: 20030625, end: 200310
  15. ACETAMINOPHEN W/CODEINE PHOSPHATE [Concomitant]
     Active Substance: ACETAMINOPHEN\CODEINE PHOSPHATE
     Route: 065
  16. CIMZIA [Suspect]
     Active Substance: CERTOLIZUMAB PEGOL
     Indication: PRODUCT USED FOR UNKNOWN INDICATION
     Route: 058
  17. HYDROXYCHLOROQUINE SULFATE. [Suspect]
     Active Substance: HYDROXYCHLOROQUINE SULFATE
     Indication: RHEUMATOID ARTHRITIS
     Route: 065
  18. TYLENOL WITH CODEINE [Concomitant]
     Active Substance: ACETAMINOPHEN\CODEINE PHOSPHATE
     Route: 065
  19. HYDROMORPHONE HYDROCHLORIDE. [Concomitant]
     Active Substance: HYDROMORPHONE HYDROCHLORIDE
     Route: 065
  20. SIMPONI [Suspect]
     Active Substance: GOLIMUMAB
     Indication: PRODUCT USED FOR UNKNOWN INDICATION
     Route: 058
  21. TYLENOL [Suspect]
     Active Substance: ACETAMINOPHEN
     Indication: RHEUMATOID ARTHRITIS
     Route: 065
  22. HUMIRA [Suspect]
     Active Substance: ADALIMUMAB
     Indication: RHEUMATOID ARTHRITIS
     Route: 058
  23. ACTEMRA [Suspect]
     Active Substance: TOCILIZUMAB
     Indication: RHEUMATOID ARTHRITIS
     Route: 065
  24. METHOTREXATE. [Concomitant]
     Active Substance: METHOTREXATE
     Indication: RHEUMATOID ARTHRITIS
     Route: 065
  25. CELEBREX [Concomitant]
     Active Substance: CELECOXIB
     Route: 048
  26. PARACETAMOL [Suspect]
     Active Substance: ACETAMINOPHEN
     Route: 065
  27. ENBREL [Suspect]
     Active Substance: ETANERCEPT
     Route: 065
  28. APO-LEFLUNOMIDE [Suspect]
     Active Substance: LEFLUNOMIDE
     Indication: PRODUCT USED FOR UNKNOWN INDICATION
     Route: 065
  29. MELOXICAM. [Concomitant]
     Active Substance: MELOXICAM
     Route: 065

REACTIONS (6)
  - Somnolence [Not Recovered/Not Resolved]
  - Nephrolithiasis [Not Recovered/Not Resolved]
  - Visual impairment [Not Recovered/Not Resolved]
  - Rheumatoid arthritis [Not Recovered/Not Resolved]
  - Drug intolerance [Unknown]
  - Drug ineffective [Unknown]

NARRATIVE: CASE EVENT DATE: 201601
